FAERS Safety Report 21179888 (Version 1)
Quarter: 2022Q3

REPORT INFORMATION
  Report Type: Spontaneous
  Country: US (occurrence: None)
  Receive Date: 20220805
  Receipt Date: 20220805
  Transmission Date: 20221027
  Serious: Yes (Hospitalization)
  Sender: FDA-Public Use
  Company Number: None

PATIENT
  Sex: Female
  Weight: 86.73 kg

DRUGS (14)
  1. LENALIDOMIDE [Suspect]
     Active Substance: LENALIDOMIDE
     Indication: Myelodysplastic syndrome
     Dosage: OTHER FREQUENCY : DAILY 14D ON 14D O;?
     Route: 048
  2. FENOFIBRATE [Concomitant]
     Active Substance: FENOFIBRATE
  3. LEVOTHYROXINE SODIUM [Concomitant]
     Active Substance: LEVOTHYROXINE SODIUM
  4. CARVEDILOL [Concomitant]
     Active Substance: CARVEDILOL
  5. FAMOTIDINE [Concomitant]
     Active Substance: FAMOTIDINE
  6. IRON [Concomitant]
     Active Substance: IRON
  7. AMLODIPINE BESYLATE [Concomitant]
     Active Substance: AMLODIPINE BESYLATE
  8. DULOXETINE [Concomitant]
     Active Substance: DULOXETINE
  9. JANUVIA [Concomitant]
     Active Substance: SITAGLIPTIN PHOSPHATE
  10. ISOSORBIDE MONONITRATE [Concomitant]
     Active Substance: ISOSORBIDE MONONITRATE
  11. LISINOPRIL [Concomitant]
     Active Substance: LISINOPRIL
  12. ATORVASTATIN CALCIUM [Concomitant]
     Active Substance: ATORVASTATIN CALCIUM
  13. CLOPIDOGREL BISULFATE [Concomitant]
     Active Substance: CLOPIDOGREL BISULFATE
  14. ASPIRIN [Concomitant]
     Active Substance: ASPIRIN

REACTIONS (1)
  - Urinary tract infection [None]
